FAERS Safety Report 17781313 (Version 1)
Quarter: 2020Q2

REPORT INFORMATION
  Report Type: Spontaneous
  Country: PL (occurrence: PL)
  Receive Date: 20200513
  Receipt Date: 20200513
  Transmission Date: 20200714
  Serious: Yes (Hospitalization)
  Sender: FDA-Public Use
  Company Number: PL-GLAXOSMITHKLINE-PL2019237893

PATIENT
  Age: 25 Year
  Sex: Male

DRUGS (8)
  1. FLUCONAZOLE. [Suspect]
     Active Substance: FLUCONAZOLE
     Indication: TRICHOPHYTOSIS
     Dosage: UNK
     Route: 065
     Dates: start: 200910
  2. TERBINAFINE. [Suspect]
     Active Substance: TERBINAFINE
     Indication: TINEA BARBAE
  3. VANCOMYCIN [Suspect]
     Active Substance: VANCOMYCIN
     Indication: TRICHOPHYTOSIS
     Dosage: UNK, STARTED 4 DAYS PRIOR TO ERYTHEMA NODOSUM
     Route: 065
     Dates: start: 200910
  4. KETOCONAZOLE. [Suspect]
     Active Substance: KETOCONAZOLE
     Indication: PRODUCT USED FOR UNKNOWN INDICATION
     Dosage: 100 MG
     Route: 065
  5. CEFTRIAXONE. [Suspect]
     Active Substance: CEFTRIAXONE
     Dosage: 2 G, QD
     Route: 065
     Dates: start: 200910
  6. TERBINAFINE. [Suspect]
     Active Substance: TERBINAFINE
     Indication: TRICHOPHYTOSIS
     Dosage: 250 MG, QD
     Route: 048
     Dates: start: 200910
  7. VANCOMYCIN [Suspect]
     Active Substance: VANCOMYCIN
     Indication: TINEA BARBAE
  8. AMOXICILLIN + CLAVULANIC ACID [Suspect]
     Active Substance: AMOXICILLIN\CLAVULANIC ACID
     Indication: TRICHOPHYTOSIS
     Dosage: UNK, STARTED FOR 8 DAYS
     Route: 065
     Dates: start: 200910

REACTIONS (5)
  - Arthritis [Recovering/Resolving]
  - Drug ineffective [Unknown]
  - Dermatitis [Recovering/Resolving]
  - Erythema nodosum [Recovering/Resolving]
  - Abdominal pain [Recovering/Resolving]

NARRATIVE: CASE EVENT DATE: 200910
